FAERS Safety Report 5061676-1 (Version None)
Quarter: 2006Q3

REPORT INFORMATION
  Report Type: 
  Country: None (occurrence: None)
  Receive Date: 20060721
  Receipt Date: 20060705
  Transmission Date: 20061208
  Serious: Yes (Hospitalization, Other)
  Sender: FDA-Public Use
  Company Number: US200606001688

PATIENT
  Age: 82 Year
  Sex: Female

DRUGS (3)
  1. HUMULIN 70/30 [Suspect]
     Dates: start: 19900101, end: 20050601
  2. HUMULIN 70/30 [Suspect]
     Dates: start: 20050601
  3. HUMULIN 70/30 PEN [Concomitant]

REACTIONS (9)
  - BLOOD GLUCOSE INCREASED [None]
  - CATARACT [None]
  - CORONARY ARTERY BYPASS [None]
  - HYPERTENSION [None]
  - JOINT SWELLING [None]
  - MYOCARDIAL INFARCTION [None]
  - PHARMACEUTICAL PRODUCT COMPLAINT [None]
  - SYNCOPE [None]
  - UPPER LIMB FRACTURE [None]
